FAERS Safety Report 8075726-1 (Version None)
Quarter: 2012Q1

REPORT INFORMATION
  Report Type: 
  Country: None (occurrence: None)
  Receive Date: 20120125
  Receipt Date: 20120125
  Transmission Date: 20120608
  Serious: Yes (Death)
  Sender: FDA-Public Use
  Company Number: None

PATIENT
  Age: 57 Year
  Sex: Male

DRUGS (9)
  1. ALLOPURINOL [Concomitant]
  2. SEVELAMER [Concomitant]
  3. HYDROCODONE BITARTRATE AND ACETAMINOPHEN [Concomitant]
  4. FENTANYL [Concomitant]
  5. REVLIMID [Suspect]
     Indication: MULTIPLE MYELOMA
     Dosage: REVLIMID 5 MG DAILY X21D/28D ORALLY
     Route: 048
     Dates: start: 20111001, end: 20120101
  6. MIRTAZAPINE [Concomitant]
  7. HYDROMORPHONE HCL [Concomitant]
  8. ONDANSETRON [Concomitant]
  9. OMEPRAZOLE [Concomitant]

REACTIONS (4)
  - FAILURE TO THRIVE [None]
  - DRUG INEFFECTIVE [None]
  - BLOOD BILIRUBIN INCREASED [None]
  - GENERAL PHYSICAL HEALTH DETERIORATION [None]
